FAERS Safety Report 12568708 (Version 1)
Quarter: 2016Q3

REPORT INFORMATION
  Report Type: Report from Study
  Country: US (occurrence: US)
  Receive Date: 20160719
  Receipt Date: 20160719
  Transmission Date: 20161109
  Serious: Yes (Hospitalization, Other)
  Sender: FDA-Public Use
  Company Number: US-AMGEN-USASL2016091445

PATIENT
  Age: 55 Year
  Sex: Male

DRUGS (1)
  1. ENBREL [Suspect]
     Active Substance: ETANERCEPT
     Indication: PSORIASIS
     Dosage: 50 MG, UNK
     Route: 065
     Dates: start: 20150504

REACTIONS (4)
  - Suicidal ideation [Unknown]
  - Spinal operation [Unknown]
  - Discomfort [Unknown]
  - Suicide attempt [Unknown]

NARRATIVE: CASE EVENT DATE: 201603
